FAERS Safety Report 14146324 (Version 2)
Quarter: 2017Q4

REPORT INFORMATION
  Report Type: Spontaneous
  Country: BR (occurrence: BR)
  Receive Date: 20171031
  Receipt Date: 20171111
  Transmission Date: 20180321
  Serious: Yes (Other)
  Sender: FDA-Public Use
  Company Number: BR-SA-2017SA012327

PATIENT
  Age: 40 Year
  Sex: Female
  Weight: 60 kg

DRUGS (5)
  1. ENDOFOLIN [Concomitant]
     Active Substance: FOLIC ACID
     Indication: PROPHYLAXIS
     Dosage: 5 MG/TABLETS, 1 TABLET IN THE MORNING
     Route: 048
     Dates: start: 201612, end: 201701
  2. CLEXANE [Suspect]
     Active Substance: ENOXAPARIN SODIUM
     Indication: HYPERCOAGULATION
     Dosage: 1 INJECTION OF 40MG PER DAY IN THE BELLY.
     Route: 051
     Dates: start: 201612, end: 201701
  3. FOLIC ACID. [Concomitant]
     Active Substance: FOLIC ACID
     Indication: PREGNANCY
     Dosage: 1 TABLET OF 5MG PER DAY
     Route: 048
     Dates: start: 20161210
  4. CLEXANE [Suspect]
     Active Substance: ENOXAPARIN SODIUM
     Indication: PROTEIN TOTAL DECREASED
     Dosage: 1 INJECTION OF 40MG PER DAY IN THE BELLY.
     Route: 051
     Dates: start: 201612, end: 201701
  5. UTROGESTAN [Concomitant]
     Active Substance: PROGESTERONE
     Indication: PROGESTERONE
     Route: 067
     Dates: start: 201612, end: 201701

REACTIONS (8)
  - Blood pressure decreased [Recovered/Resolved]
  - Nausea [Recovered/Resolved]
  - Exposure during pregnancy [Recovered/Resolved]
  - Abortion [Unknown]
  - Ear disorder [Recovered/Resolved]
  - Hyperhidrosis [Recovered/Resolved]
  - Dizziness [Recovered/Resolved]
  - Malaise [Recovered/Resolved]
